FAERS Safety Report 5169186-8 (Version None)
Quarter: 2006Q4

REPORT INFORMATION
  Report Type: 
  Country: None (occurrence: None)
  Receive Date: 20061211
  Receipt Date: 20061129
  Transmission Date: 20070319
  Serious: Yes (Other)
  Sender: FDA-Public Use
  Company Number: US-NOVOPROD-258990

PATIENT
  Age: 62 Year
  Sex: Female
  Weight: 81.633 kg

DRUGS (7)
  1. LEVEMIR [Suspect]
     Indication: INSULIN-REQUIRING TYPE II DIABETES MELLITUS
     Dosage: 10 IU, QD
     Route: 058
     Dates: start: 20061101
  2. NOVOLOG [Suspect]
     Indication: INSULIN-REQUIRING TYPE II DIABETES MELLITUS
     Dosage: 5 IU, TID
     Route: 058
  3. AVANDIA [Concomitant]
     Indication: INSULIN-REQUIRING TYPE II DIABETES MELLITUS
  4. METFORMIN [Concomitant]
     Indication: INSULIN-REQUIRING TYPE II DIABETES MELLITUS
  5. LISINOPRIL [Concomitant]
     Indication: HYPERTENSION
  6. LASIX [Concomitant]
     Indication: FLUID RETENTION
     Dosage: 20 MG, QD
     Route: 048
     Dates: start: 20061121, end: 20061127
  7. LASIX [Concomitant]
     Dosage: 40 MG, QD
     Route: 048
     Dates: start: 20061128

REACTIONS (1)
  - CARDIAC FAILURE CONGESTIVE [None]
